FAERS Safety Report 7747360-1 (Version None)
Quarter: 2011Q3

REPORT INFORMATION
  Report Type: 
  Country: None (occurrence: None)
  Receive Date: 20110913
  Receipt Date: 20110831
  Transmission Date: 20111222
  Serious: Yes (Hospitalization)
  Sender: FDA-Public Use
  Company Number: US-GLAXOSMITHKLINE-A0897027A

PATIENT
  Age: 57 Year
  Sex: Male
  Weight: 110.9 kg

DRUGS (8)
  1. AVANDIA [Suspect]
     Indication: DIABETES MELLITUS
     Dosage: 8MG PER DAY
     Route: 048
     Dates: start: 20000516, end: 20020210
  2. GLUCOVANCE [Concomitant]
  3. AMARYL [Concomitant]
  4. ACEON [Concomitant]
  5. PRILOSEC [Concomitant]
  6. GLUCOPHAGE [Concomitant]
  7. VIOXX [Concomitant]
  8. ELAVIL [Concomitant]

REACTIONS (2)
  - CORONARY ARTERY DISEASE [None]
  - CEREBROVASCULAR ACCIDENT [None]
